FAERS Safety Report 5766325-2 (Version None)
Quarter: 2008Q2

REPORT INFORMATION
  Report Type: 
  Country: None (occurrence: None)
  Receive Date: 20080611
  Receipt Date: 20080527
  Transmission Date: 20081010
  Serious: Yes (Hospitalization)
  Sender: FDA-Public Use
  Company Number: JP-GENENTECH-262135

PATIENT
  Sex: Male
  Weight: 70.2 kg

DRUGS (15)
  1. AVASTIN [Suspect]
     Indication: COLON CANCER
     Dosage: 350 MG, Q2W
     Route: 041
     Dates: start: 20071213, end: 20080501
  2. IRINOTECAN HCL [Concomitant]
     Indication: DRUG USE FOR UNKNOWN INDICATION
  3. FLUOROURACIL [Concomitant]
     Indication: DRUG USE FOR UNKNOWN INDICATION
  4. ISOVORIN [Concomitant]
     Indication: DRUG USE FOR UNKNOWN INDICATION
  5. OXYCONTIN [Concomitant]
     Indication: DRUG USE FOR UNKNOWN INDICATION
  6. ORGOTEIN [Concomitant]
     Indication: DRUG USE FOR UNKNOWN INDICATION
  7. LOXONIN [Concomitant]
     Indication: DRUG USE FOR UNKNOWN INDICATION
  8. BLOPRESS [Concomitant]
     Indication: DRUG USE FOR UNKNOWN INDICATION
  9. LENDORMIN [Concomitant]
     Indication: DRUG USE FOR UNKNOWN INDICATION
  10. URSO 250 [Concomitant]
     Indication: DRUG USE FOR UNKNOWN INDICATION
  11. URINORM [Concomitant]
     Indication: DRUG USE FOR UNKNOWN INDICATION
  12. MAGMITT [Concomitant]
     Indication: DRUG USE FOR UNKNOWN INDICATION
  13. DASEN [Concomitant]
     Indication: DRUG USE FOR UNKNOWN INDICATION
  14. DIFLUCORTOLONE VALERATE [Concomitant]
     Indication: DRUG USE FOR UNKNOWN INDICATION
  15. CEFZON [Concomitant]
     Indication: DRUG USE FOR UNKNOWN INDICATION

REACTIONS (1)
  - PURPURA [None]
